FAERS Safety Report 20477626 (Version 1)
Quarter: 2022Q1

REPORT INFORMATION
  Report Type: Report from Study
  Country: US (occurrence: US)
  Receive Date: 20220216
  Receipt Date: 20220216
  Transmission Date: 20220424
  Serious: Yes (Other)
  Sender: FDA-Public Use
  Company Number: US-TAKEDA-2022TUS008802

PATIENT
  Sex: Female
  Weight: 61 kg

DRUGS (5)
  1. BRIGATINIB [Suspect]
     Active Substance: BRIGATINIB
     Indication: Lung neoplasm malignant
     Dosage: 90 MILLIGRAM, QD
     Route: 048
  2. SYNTHROID [Concomitant]
     Active Substance: LEVOTHYROXINE SODIUM
     Indication: Thyroid disorder
     Dosage: 100 MICROGRAM
     Route: 065
  3. AMIODARONE [Concomitant]
     Active Substance: AMIODARONE
     Dosage: 200 MILLIGRAM
     Route: 065
  4. WARFARIN [Concomitant]
     Active Substance: WARFARIN
     Dosage: 3 MILLIGRAM
     Route: 065
  5. POTASSIUM [Concomitant]
     Active Substance: POTASSIUM
     Dosage: 1 MICROGRAM
     Route: 065

REACTIONS (5)
  - Loss of consciousness [Unknown]
  - Cataract [Unknown]
  - Diarrhoea [Unknown]
  - Malaise [Unknown]
  - Sinus pain [Unknown]
